FAERS Safety Report 4682321-0 (Version None)
Quarter: 2005Q2

REPORT INFORMATION
  Report Type: 
  Country: None (occurrence: None)
  Receive Date: 20050606
  Receipt Date: 20050525
  Transmission Date: 20051028
  Serious: Yes (Hospitalization)
  Sender: FDA-Public Use
  Company Number: IT-BRISTOL-MYERS SQUIBB COMPANY-12989539

PATIENT
  Age: 66 Year
  Sex: Female

DRUGS (3)
  1. CETUXIMAB [Suspect]
     Indication: NON-SMALL CELL LUNG CANCER
     Dosage: MOST RECENT CETUXIMAB INFUSION ADMINISTERED ON 13-MAY-2005 (2ND).
     Route: 041
     Dates: start: 20050506
  2. CISPLATIN [Suspect]
     Indication: NON-SMALL CELL LUNG CANCER
     Dosage: FIRST AND MOST RECENT CISPLATIN INFUSION ADMINISTERED ON 06-MAY-2005.
     Route: 042
     Dates: start: 20050506
  3. VINORELBINE TARTRATE [Suspect]
     Indication: NON-SMALL CELL LUNG CANCER
     Dosage: MOST RECENT VINORELBINE INFUSION ADMINISTERED ON 13-MAY-2005 (2ND).
     Route: 042
     Dates: start: 20050506

REACTIONS (6)
  - DYSPHAGIA [None]
  - NEUTROPENIA [None]
  - ODYNOPHAGIA [None]
  - OESOPHAGITIS [None]
  - ORAL INTAKE REDUCED [None]
  - RENAL FAILURE [None]
